FAERS Safety Report 9526373 (Version 1)
Quarter: 2013Q1

REPORT INFORMATION
  Report Type: Spontaneous
  Country: US (occurrence: None)
  Receive Date: 20130305
  Receipt Date: 20130305
  Transmission Date: 20140127
  Serious: Yes (Hospitalization, Other)
  Sender: FDA-Public Use
  Company Number: 163-21880-12031327

PATIENT
  Age: 64 Year
  Sex: Male
  Weight: 82.6 kg

DRUGS (1)
  1. REVLIMID [Suspect]
     Indication: PLASMA CELL MYELOMA
     Dosage: 1 IN 1 D
     Route: 048
     Dates: start: 20100318, end: 20101013

REACTIONS (6)
  - Respiratory tract infection [None]
  - Faeces hard [None]
  - Pruritus [None]
  - Fatigue [None]
  - Rash [None]
  - Bronchitis [None]
